FAERS Safety Report 7604652-4 (Version None)
Quarter: 2011Q3

REPORT INFORMATION
  Report Type: 
  Country: None (occurrence: None)
  Receive Date: 20110712
  Receipt Date: 20110702
  Transmission Date: 20111222
  Serious: Yes (Death)
  Sender: FDA-Public Use
  Company Number: EG-SANOFI-AVENTIS-2011SA042454

PATIENT
  Age: 65 Year
  Sex: Female

DRUGS (1)
  1. LANTUS [Suspect]
     Indication: DIABETES MELLITUS
     Dosage: PREVIOUSLY TOOK 25 UNITS AN THEN ON AN UNKNOWN DATE WAS INCREASED TO 28 UNITS DOSE:28 UNIT(S)
     Route: 058
     Dates: start: 20100621, end: 20110521

REACTIONS (1)
  - CARDIAC DISORDER [None]
